FAERS Safety Report 6962249-3 (Version None)
Quarter: 2010Q3

REPORT INFORMATION
  Report Type: 
  Country: None (occurrence: None)
  Receive Date: 20100823
  Receipt Date: 20100510
  Transmission Date: 20110219
  Serious: No
  Sender: FDA-Public Use
  Company Number: 011763

PATIENT
  Sex: Female
  Weight: 81.8 kg

DRUGS (8)
  1. CIMZIA [Suspect]
     Indication: RHEUMATOID ARTHRITIS
     Dosage: (SUBCUTANEOUS)
     Route: 058
     Dates: start: 20100301
  2. PREDNISONE [Concomitant]
  3. METHOTRECATE [Concomitant]
  4. NAPROXEN [Concomitant]
  5. PERCOCET [Concomitant]
  6. FOLIC ACID [Concomitant]
  7. INDERAL /000300001/ [Concomitant]
  8. QUININE [Concomitant]

REACTIONS (1)
  - DRUG INEFFECTIVE [None]
